FAERS Safety Report 22633514 (Version 3)
Quarter: 2023Q4

REPORT INFORMATION
  Report Type: Spontaneous
  Country: JP (occurrence: JP)
  Receive Date: 20230623
  Receipt Date: 20231031
  Transmission Date: 20240110
  Serious: Yes (Other)
  Sender: FDA-Public Use
  Company Number: JP-ABBVIE-5301882

PATIENT
  Age: 67 Year
  Sex: Female
  Weight: 41 kg

DRUGS (8)
  1. HUMIRA [Suspect]
     Active Substance: ADALIMUMAB
     Indication: Rheumatoid arthritis
     Route: 058
  2. RINVOQ [Suspect]
     Active Substance: UPADACITINIB
     Indication: Rheumatoid arthritis
     Dosage: STRENGTH: 15 MG
     Route: 048
     Dates: start: 20230529, end: 20230612
  3. CARBOCYSTEINE [Concomitant]
     Active Substance: CARBOCYSTEINE
     Indication: Sinusitis
     Dosage: 1000 MILLIGRAM
     Dates: start: 20161027
  4. ELDECALCITOL [Concomitant]
     Active Substance: ELDECALCITOL
     Indication: Osteoporosis
     Dosage: 0.5 MICROGRAM
     Dates: start: 20191025
  5. DENOSUMAB [Concomitant]
     Active Substance: DENOSUMAB
     Indication: Osteoporosis
  6. CERTOLIZUMAB PEGOL [Concomitant]
     Active Substance: CERTOLIZUMAB PEGOL
     Indication: Rheumatoid arthritis
  7. BARICITINIB [Concomitant]
     Active Substance: BARICITINIB
     Indication: Rheumatoid arthritis
  8. TOCILIZUMAB [Concomitant]
     Active Substance: TOCILIZUMAB
     Indication: Rheumatoid arthritis

REACTIONS (3)
  - Blood creatine phosphokinase increased [Recovered/Resolved]
  - Therapeutic product effect incomplete [Unknown]
  - Blood creatine phosphokinase increased [Recovered/Resolved]

NARRATIVE: CASE EVENT DATE: 20230612
